FAERS Safety Report 5720949-7 (Version None)
Quarter: 2008Q2

REPORT INFORMATION
  Report Type: 
  Country: None (occurrence: None)
  Receive Date: 20080424
  Receipt Date: 20080408
  Transmission Date: 20081010
  Serious: Yes (Death, Life-Threatening)
  Sender: FDA-Public Use
  Company Number: 2008US001031

PATIENT
  Age: 25 Year
  Sex: Male

DRUGS (6)
  1. AMBISOME [Suspect]
     Indication: ASPERGILLOSIS
     Dosage: 400 MG, UID/QD, IV DRIP; UID/QD, IV NOS
     Dates: start: 20070209, end: 20070330
  2. MYCAMINE [Suspect]
     Indication: ANTIFUNGAL PROPHYLAXIS
     Dosage: 100 MG, UID/QD,; 100 MG, UID/QD,; 75 MG, UID/QD,
     Dates: start: 20070127, end: 20070131
  3. MYCAMINE [Suspect]
     Indication: ANTIFUNGAL PROPHYLAXIS
     Dosage: 100 MG, UID/QD,; 100 MG, UID/QD,; 75 MG, UID/QD,
     Dates: start: 20070201, end: 20070208
  4. MYCAMINE [Suspect]
     Indication: ANTIFUNGAL PROPHYLAXIS
     Dosage: 100 MG, UID/QD,; 100 MG, UID/QD,; 75 MG, UID/QD,
     Dates: start: 20070401, end: 20070406
  5. DIFLUCAN [Concomitant]
  6. VFEND [Concomitant]

REACTIONS (1)
  - NEPHROPATHY TOXIC [None]
